FAERS Safety Report 8869976 (Version 1)
Quarter: 2012Q4

REPORT INFORMATION
  Report Type: 
  Country: US (occurrence: US)
  Receive Date: 20121028
  Receipt Date: 20121028
  Transmission Date: 20130627
  Serious: No
  Sender: FDA-Public Use
  Company Number: US-009507513-1210USA006290

PATIENT
  Age: 59 Year
  Sex: Male
  Weight: 89.8 kg

DRUGS (5)
  1. PEGINTRON [Suspect]
     Dosage: 150 Microgram, qw
     Route: 058
     Dates: start: 20120928
  2. RIBAPAK [Suspect]
     Dosage: 1200 UNK, qd
  3. TELAPREVIR [Suspect]
     Dosage: 375 UNK, UNK
  4. SAW PALMETTO [Concomitant]
  5. VITAMINS (UNSPECIFIED) [Concomitant]

REACTIONS (3)
  - Device failure [Unknown]
  - Drug dose omission [Unknown]
  - Product quality issue [Unknown]
